FAERS Safety Report 21939327 (Version 5)
Quarter: 2023Q2

REPORT INFORMATION
  Report Type: Report from Study
  Country: US (occurrence: US)
  Receive Date: 20230201
  Receipt Date: 20230411
  Transmission Date: 20230722
  Serious: Yes (Death, Hospitalization, Other)
  Sender: FDA-Public Use
  Company Number: US-ABBVIE-4290873

PATIENT
  Sex: Male

DRUGS (2)
  1. RINVOQ [Suspect]
     Active Substance: UPADACITINIB
     Indication: Product used for unknown indication
     Route: 048
     Dates: start: 20220613
  2. AUGMENTIN [Concomitant]
     Active Substance: AMOXICILLIN\CLAVULANATE POTASSIUM
     Indication: Product used for unknown indication
     Dates: start: 20230124

REACTIONS (13)
  - Death [Fatal]
  - Toe amputation [Unknown]
  - Staphylococcal bacteraemia [Unknown]
  - Cyst [Unknown]
  - Dysuria [Unknown]
  - Cellulitis [Unknown]
  - Oral herpes [Unknown]
  - Nephropathy [Not Recovered/Not Resolved]
  - Muscular weakness [Unknown]
  - Arthritis [Unknown]
  - Neuropathy peripheral [Unknown]
  - Pruritus [Unknown]
  - Body temperature decreased [Unknown]
